FAERS Safety Report 9235199 (Version 1)
Quarter: 2013Q2

REPORT INFORMATION
  Report Type: Spontaneous
  Country: US (occurrence: US)
  Receive Date: 20130417
  Receipt Date: 20130417
  Transmission Date: 20140414
  Serious: Yes (Hospitalization, Other)
  Sender: FDA-Public Use
  Company Number: US-AMGEN-USASP2013026184

PATIENT
  Age: 69 Year
  Sex: Male
  Weight: 90.25 kg

DRUGS (5)
  1. PROCRIT [Suspect]
     Indication: PRODUCT USED FOR UNKNOWN INDICATION
     Dosage: 60000 UNIT, TWICE A WEEK IF BLOOD COUNT IS BELOW 10
  2. LENALIDOMIDE [Concomitant]
     Indication: NEOPLASM MALIGNANT
     Dosage: UNK
     Dates: start: 2012
  3. INSULIN [Concomitant]
     Indication: DIABETES MELLITUS
     Dosage: UNK
  4. DEXAMETHASONE [Concomitant]
     Indication: NEOPLASM MALIGNANT
     Dosage: UNK
     Dates: start: 2012
  5. GLIPIZIDE [Concomitant]
     Indication: DIABETES MELLITUS
     Dosage: 15MG/TABLET/10MG/TWICE A DAY
     Route: 048

REACTIONS (5)
  - Pneumonia [Unknown]
  - Cardiac failure [Not Recovered/Not Resolved]
  - Aortic thrombosis [Not Recovered/Not Resolved]
  - Neoplasm malignant [Not Recovered/Not Resolved]
  - Dyspnoea [Recovered/Resolved]
